FAERS Safety Report 12310498 (Version 1)
Quarter: 2016Q2

REPORT INFORMATION
  Report Type: Spontaneous
  Country: JP (occurrence: None)
  Receive Date: 20160426
  Receipt Date: 20160426
  Transmission Date: 20160815
  Serious: Yes (Other)
  Sender: FDA-Public Use
  Company Number: JP-ALSI-201600094

PATIENT
  Age: 73 Year
  Sex: Male

DRUGS (5)
  1. QUETIAPINE. [Suspect]
     Active Substance: QUETIAPINE
  2. EKIKA SANSO OXYGEN [Suspect]
     Active Substance: OXYGEN
     Indication: NOCTURNAL DYSPNOEA
     Route: 055
  3. RAMELTEON [Suspect]
     Active Substance: RAMELTEON
  4. ZOPLICONE [Suspect]
     Active Substance: ZOPICLONE
     Indication: INSOMNIA
     Route: 048
  5. SERENACE (HALOPERIDOL) [Suspect]
     Active Substance: HALOPERIDOL

REACTIONS (4)
  - Hypercapnia [None]
  - Delirium [None]
  - Nocturnal dyspnoea [None]
  - Psychomotor hyperactivity [None]
